FAERS Safety Report 24915201 (Version 1)
Quarter: 2025Q1

REPORT INFORMATION
  Report Type: Spontaneous
  Country: JP (occurrence: JP)
  Receive Date: 20250203
  Receipt Date: 20250203
  Transmission Date: 20250408
  Serious: Yes (Death)
  Sender: RECORDATI
  Company Number: JP-ORPHANEU-2025000544

PATIENT

DRUGS (3)
  1. CARBAGLU [Suspect]
     Active Substance: CARGLUMIC ACID
     Indication: Hyperammonaemia
     Dosage: 200 MG, DAILY (QID)
     Route: 048
     Dates: start: 20250107, end: 20250113
  2. BUPHENYL [Concomitant]
     Active Substance: SODIUM PHENYLBUTYRATE
     Indication: Product used for unknown indication
     Dates: start: 2024, end: 20250113
  3. LEVOCARNITINE HYDROCHLORIDE [Concomitant]
     Active Substance: LEVOCARNITINE HYDROCHLORIDE
     Indication: Product used for unknown indication
     Dates: start: 2024, end: 20250113

REACTIONS (2)
  - Gastrointestinal perforation [Fatal]
  - Multiple organ dysfunction syndrome [Fatal]

NARRATIVE: CASE EVENT DATE: 20250113
